FAERS Safety Report 9752806 (Version 1)
Quarter: 2013Q4

REPORT INFORMATION
  Report Type: Spontaneous
  Country: US (occurrence: None)
  Receive Date: 20131212
  Receipt Date: 20131212
  Transmission Date: 20140711
  Serious: Yes (Hospitalization)
  Sender: FDA-Public Use
  Company Number: None

PATIENT
  Age: 57 Year
  Sex: Male
  Weight: 88.9 kg

DRUGS (4)
  1. EFFIENT 10 MG ELI LILLY + CO [Suspect]
     Indication: ANGINA PECTORIS
     Dosage: 1 PILL DAILY  QD  ORAL
     Route: 048
     Dates: start: 20130719, end: 20130729
  2. ASPIRIN [Concomitant]
  3. ZOLPIDEM [Concomitant]
  4. SIMVASTATIN [Concomitant]

REACTIONS (1)
  - Subarachnoid haemorrhage [None]
